FAERS Safety Report 19759664 (Version 2)
Quarter: 2021Q4

REPORT INFORMATION
  Report Type: Spontaneous
  Country: US (occurrence: US)
  Receive Date: 20210830
  Receipt Date: 20211004
  Transmission Date: 20220303
  Serious: No
  Sender: FDA-Public Use
  Company Number: US-ORGANON-O2108USA001617

PATIENT
  Age: 40 Year
  Sex: Female
  Weight: 95.87 kg

DRUGS (1)
  1. NEXPLANON [Suspect]
     Active Substance: ETONOGESTREL
     Indication: Contraception
     Dosage: 1 IMPANT (68 MILLIGRAM ) EVERY 3 YEARS, LEFT UPPER ARM
     Dates: start: 20210730, end: 20210818

REACTIONS (4)
  - Implant site haemorrhage [Recovered/Resolved]
  - Implant site pain [Recovered/Resolved]
  - Device expulsion [Recovered/Resolved]
  - Device placement issue [Recovered/Resolved]

NARRATIVE: CASE EVENT DATE: 20210730
